FAERS Safety Report 7354933-7 (Version None)
Quarter: 2011Q1

REPORT INFORMATION
  Report Type: 
  Country: None (occurrence: None)
  Receive Date: 20110302
  Receipt Date: 20110218
  Transmission Date: 20110831
  Serious: Yes (Other)
  Sender: FDA-Public Use
  Company Number: 2011027661

PATIENT
  Age: 53 Year
  Sex: Male

DRUGS (16)
  1. ZANTAC [Concomitant]
  2. BENERVA (THIAMINE HYDROCHLORIDE) [Concomitant]
  3. REDIMUNE [Suspect]
     Indication: POLYNEUROPATHY
     Dosage: 48 G QD, INTRAVENOUS DRIP
     Route: 041
     Dates: start: 20101224, end: 20101227
  4. OXAZEPAM [Concomitant]
  5. SEROQUEL [Concomitant]
  6. SIRDALUD (TYIZANIDINE HYDROCHLORIDE) [Concomitant]
  7. ACETAMINOPHEN [Concomitant]
  8. LYRICA [Concomitant]
  9. TRAZODONE HYDROCHLORIDE [Concomitant]
  10. MOTILIUM [Concomitant]
  11. CYMBALTA [Concomitant]
  12. XANAX [Concomitant]
  13. BECOZYME [Concomitant]
  14. ASPIRIN [Concomitant]
  15. MORPHINE [Concomitant]
  16. METAMUCIL-2 [Concomitant]

REACTIONS (1)
  - GOUT [None]
